FAERS Safety Report 9369996 (Version 2)
Quarter: 2013Q3

REPORT INFORMATION
  Report Type: Spontaneous
  Country: BR (occurrence: BR)
  Receive Date: 20130626
  Receipt Date: 20130701
  Transmission Date: 20140515
  Serious: Yes (Hospitalization)
  Sender: FDA-Public Use
  Company Number: BR-JNJFOC-20130615746

PATIENT
  Age: 65 Year
  Sex: Female

DRUGS (6)
  1. XARELTO [Suspect]
     Indication: ANTICOAGULANT THERAPY
     Route: 048
     Dates: start: 20130510, end: 20130610
  2. GLIFAGE [Concomitant]
     Indication: PRODUCT USED FOR UNKNOWN INDICATION
     Route: 048
     Dates: start: 2012
  3. OMEPRAZOLE [Concomitant]
     Indication: GASTRIC DISORDER
     Route: 048
     Dates: start: 2012
  4. SELOZOK [Concomitant]
     Indication: PRODUCT USED FOR UNKNOWN INDICATION
     Route: 048
  5. MAREVAN [Concomitant]
     Indication: ANTICOAGULANT THERAPY
     Route: 048
     Dates: start: 20130613
  6. MICARDIS [Concomitant]
     Indication: BLOOD PRESSURE ABNORMAL
     Route: 048

REACTIONS (8)
  - Hypertension [Recovered/Resolved]
  - Vomiting [Recovered/Resolved]
  - Feeling cold [Recovered/Resolved]
  - Diabetes mellitus inadequate control [Unknown]
  - Blood cholesterol abnormal [Unknown]
  - Subcutaneous haematoma [Recovering/Resolving]
  - Abdominal distension [Recovering/Resolving]
  - Hepatic function abnormal [Recovered/Resolved]
